FAERS Safety Report 4756053-4 (Version None)
Quarter: 2005Q3

REPORT INFORMATION
  Report Type: 
  Country: None (occurrence: None)
  Receive Date: 20050826
  Receipt Date: 20041117
  Transmission Date: 20060218
  Serious: Yes (Hospitalization)
  Sender: FDA-Public Use
  Company Number: USA-2004-0017724

PATIENT
  Sex: Male

DRUGS (1)
  1. OXYCONTIN [Suspect]
     Dosage: 7 TABLET, DAILY, ORAL
     Route: 048

REACTIONS (1)
  - DRUG WITHDRAWAL SYNDROME [None]
